FAERS Safety Report 4884793-5 (Version None)
Quarter: 2006Q1

REPORT INFORMATION
  Report Type: 
  Country: None (occurrence: None)
  Receive Date: 20060119
  Receipt Date: 20060109
  Transmission Date: 20060701
  Serious: Yes (Life-Threatening, Hospitalization, Disabling)
  Sender: FDA-Public Use
  Company Number: US-JNJFOC-20060101709

PATIENT
  Sex: Male
  Weight: 79.38 kg

DRUGS (78)
  1. INFLIXIMAB [Suspect]
     Route: 042
  2. INFLIXIMAB [Suspect]
     Route: 042
  3. INFLIXIMAB [Suspect]
     Route: 042
  4. INFLIXIMAB [Suspect]
     Route: 042
  5. INFLIXIMAB [Suspect]
     Route: 042
  6. INFLIXIMAB [Suspect]
     Route: 042
  7. INFLIXIMAB [Suspect]
     Route: 042
  8. INFLIXIMAB [Suspect]
     Route: 042
  9. INFLIXIMAB [Suspect]
     Route: 042
  10. INFLIXIMAB [Suspect]
     Route: 042
  11. INFLIXIMAB [Suspect]
     Route: 042
  12. INFLIXIMAB [Suspect]
     Route: 042
  13. INFLIXIMAB [Suspect]
     Route: 042
  14. INFLIXIMAB [Suspect]
     Route: 042
  15. INFLIXIMAB [Suspect]
     Route: 042
  16. INFLIXIMAB [Suspect]
     Route: 042
  17. INFLIXIMAB [Suspect]
     Route: 042
  18. INFLIXIMAB [Suspect]
     Route: 042
  19. INFLIXIMAB [Suspect]
     Route: 042
  20. INFLIXIMAB [Suspect]
     Route: 042
  21. INFLIXIMAB [Suspect]
     Route: 042
  22. INFLIXIMAB [Suspect]
     Route: 042
  23. INFLIXIMAB [Suspect]
     Route: 042
  24. INFLIXIMAB [Suspect]
     Route: 042
  25. INFLIXIMAB [Suspect]
     Route: 042
  26. INFLIXIMAB [Suspect]
     Route: 042
  27. INFLIXIMAB [Suspect]
     Route: 042
  28. INFLIXIMAB [Suspect]
     Route: 042
  29. INFLIXIMAB [Suspect]
     Route: 042
  30. INFLIXIMAB [Suspect]
     Route: 042
  31. INFLIXIMAB [Suspect]
     Route: 042
  32. INFLIXIMAB [Suspect]
     Route: 042
  33. INFLIXIMAB [Suspect]
     Route: 042
  34. INFLIXIMAB [Suspect]
     Route: 042
  35. INFLIXIMAB [Suspect]
     Route: 042
  36. INFLIXIMAB [Suspect]
     Route: 042
  37. INFLIXIMAB [Suspect]
     Route: 042
  38. INFLIXIMAB [Suspect]
     Route: 042
  39. INFLIXIMAB [Suspect]
     Dosage: 10 INFUSIONS ON UNSPECIFIED DATES
     Route: 042
  40. INFLIXIMAB [Suspect]
     Indication: CROHN'S DISEASE
     Route: 042
  41. QUESTRAN [Concomitant]
     Indication: CROHN'S DISEASE
  42. MESALAMINE [Concomitant]
     Indication: CROHN'S DISEASE
  43. ACETAMINOPHEN [Concomitant]
  44. ACETAMINOPHEN [Concomitant]
  45. ACETAMINOPHEN [Concomitant]
  46. ACETAMINOPHEN [Concomitant]
  47. ACETAMINOPHEN [Concomitant]
  48. ACETAMINOPHEN [Concomitant]
  49. ACETAMINOPHEN [Concomitant]
  50. ACETAMINOPHEN [Concomitant]
  51. ACETAMINOPHEN [Concomitant]
  52. ACETAMINOPHEN [Concomitant]
  53. ACETAMINOPHEN [Concomitant]
  54. ACETAMINOPHEN [Concomitant]
  55. ACETAMINOPHEN [Concomitant]
  56. ACETAMINOPHEN [Concomitant]
  57. ACETAMINOPHEN [Concomitant]
  58. ACETAMINOPHEN [Concomitant]
  59. ACETAMINOPHEN [Concomitant]
  60. ACETAMINOPHEN [Concomitant]
     Indication: PREMEDICATION
  61. ANTIHISTAMINES [Concomitant]
  62. ANTIHISTAMINES [Concomitant]
  63. ANTIHISTAMINES [Concomitant]
  64. ANTIHISTAMINES [Concomitant]
  65. ANTIHISTAMINES [Concomitant]
  66. ANTIHISTAMINES [Concomitant]
  67. ANTIHISTAMINES [Concomitant]
  68. ANTIHISTAMINES [Concomitant]
  69. ANTIHISTAMINES [Concomitant]
  70. ANTIHISTAMINES [Concomitant]
  71. ANTIHISTAMINES [Concomitant]
  72. ANTIHISTAMINES [Concomitant]
  73. ANTIHISTAMINES [Concomitant]
  74. ANTIHISTAMINES [Concomitant]
  75. ANTIHISTAMINES [Concomitant]
  76. ANTIHISTAMINES [Concomitant]
  77. ANTIHISTAMINES [Concomitant]
  78. ANTIHISTAMINES [Concomitant]

REACTIONS (4)
  - CROHN'S DISEASE [None]
  - GASTRIC MUCOSAL LESION [None]
  - GASTROINTESTINAL HAEMORRHAGE [None]
  - SMALL INTESTINAL OBSTRUCTION [None]
